FAERS Safety Report 6457852-3 (Version None)
Quarter: 2009Q4

REPORT INFORMATION
  Report Type: 
  Country: None (occurrence: None)
  Receive Date: 20091125
  Receipt Date: 20090513
  Transmission Date: 20100525
  Serious: No
  Sender: FDA-Public Use
  Company Number: US-AMGEN-COG346904

PATIENT
  Sex: Male

DRUGS (4)
  1. ENBREL [Suspect]
     Indication: RHEUMATOID ARTHRITIS
     Route: 058
     Dates: start: 20060501
  2. ARAVA [Concomitant]
     Route: 048
  3. WARFARIN SODIUM [Concomitant]
  4. IRON [Concomitant]

REACTIONS (1)
  - INJECTION SITE PAIN [None]
